FAERS Safety Report 6814016-9 (Version None)
Quarter: 2010Q2

REPORT INFORMATION
  Report Type: 
  Country: None (occurrence: None)
  Receive Date: 20100628
  Receipt Date: 20100618
  Transmission Date: 20101027
  Serious: Yes (Congenital Anomaly)
  Sender: FDA-Public Use
  Company Number: 014166

PATIENT

DRUGS (1)
  1. KEPPRA [Suspect]
     Dosage: (TRANSPLACENTAL)
     Route: 064

REACTIONS (3)
  - CONGENITAL ANOMALY [None]
  - CONGENITAL HEART VALVE DISORDER [None]
  - MATERNAL DRUGS AFFECTING FOETUS [None]
